FAERS Safety Report 18533260 (Version 5)
Quarter: 2022Q2

REPORT INFORMATION
  Report Type: Other
  Country: CA (occurrence: CA)
  Receive Date: 20201123
  Receipt Date: 20220502
  Transmission Date: 20220721
  Serious: Yes (Hospitalization, Other)
  Sender: FDA-Public Use
  Company Number: CA-CELLTRION INC.-2020CA031774

PATIENT

DRUGS (18)
  1. RITUXIMAB [Suspect]
     Active Substance: RITUXIMAB
     Indication: Rheumatoid arthritis
     Dosage: 1000 MILLIGRAM, 1 EVERY 15 DAYS
     Route: 042
  2. METHYLPREDNISOLONE [Suspect]
     Active Substance: METHYLPREDNISOLONE
     Indication: Premedication
     Dosage: 100 MILLIGRAM
     Route: 042
  3. ACETAMINOPHEN [Concomitant]
     Active Substance: ACETAMINOPHEN
     Indication: Premedication
     Dosage: 650 MILLIGRAM
     Route: 048
  4. BENADRYL [Concomitant]
     Active Substance: DIPHENHYDRAMINE HYDROCHLORIDE
     Indication: Premedication
  5. CALCIUM [Concomitant]
     Active Substance: CALCIUM
  6. CLONAZEPAM [Concomitant]
     Active Substance: CLONAZEPAM
  7. DEPAKENE [Concomitant]
     Active Substance: VALPROIC ACID
  8. DIPHENHYDRAMINE [Concomitant]
     Active Substance: DIPHENHYDRAMINE
     Indication: Premedication
     Dosage: 50 MILLIGRAM
     Route: 048
  9. FOLIC ACID [Concomitant]
     Active Substance: FOLIC ACID
  10. IRON [Concomitant]
     Active Substance: IRON
  11. LITHIUM [Concomitant]
     Active Substance: LITHIUM
  12. LOXAPINE [Concomitant]
     Active Substance: LOXAPINE
  13. METHOTREXATE [Concomitant]
     Active Substance: METHOTREXATE
     Route: 048
  14. PROZAC [Concomitant]
     Active Substance: FLUOXETINE HYDROCHLORIDE
  15. QUETIAPINE [Concomitant]
     Active Substance: QUETIAPINE
  16. SYNTHROID [Concomitant]
     Active Substance: LEVOTHYROXINE SODIUM
  17. VENTOLIN [Concomitant]
     Active Substance: ALBUTEROL SULFATE
  18. WELLBUTRIN [Concomitant]
     Active Substance: BUPROPION HYDROCHLORIDE

REACTIONS (16)
  - Agitation [Not Recovered/Not Resolved]
  - Bipolar I disorder [Not Recovered/Not Resolved]
  - Blood pressure diastolic abnormal [Not Recovered/Not Resolved]
  - Blood pressure systolic increased [Not Recovered/Not Resolved]
  - Concussion [Not Recovered/Not Resolved]
  - Drug intolerance [Not Recovered/Not Resolved]
  - Musculoskeletal discomfort [Not Recovered/Not Resolved]
  - Oxygen saturation decreased [Not Recovered/Not Resolved]
  - Arthralgia [Not Recovered/Not Resolved]
  - Blood pressure fluctuation [Not Recovered/Not Resolved]
  - Blood pressure increased [Not Recovered/Not Resolved]
  - Confusional state [Not Recovered/Not Resolved]
  - Depression [Not Recovered/Not Resolved]
  - Drug hypersensitivity [Not Recovered/Not Resolved]
  - Dyspnoea [Not Recovered/Not Resolved]
  - Off label use [Unknown]
